FAERS Safety Report 7680016-2 (Version None)
Quarter: 2011Q3

REPORT INFORMATION
  Report Type: 
  Country: None (occurrence: None)
  Receive Date: 20110812
  Receipt Date: 20110802
  Transmission Date: 20111222
  Serious: Yes (Life-Threatening, Hospitalization, Disabling)
  Sender: FDA-Public Use
  Company Number: DE-NOVOPROD-321936

PATIENT

DRUGS (6)
  1. LEVOTHYROXINE SODIUM [Concomitant]
  2. FERRO SANOL                        /00023503/ [Concomitant]
  3. EZETIMIBE [Concomitant]
  4. PANTOZOL                           /01263202/ [Concomitant]
  5. VICTOZA [Suspect]
     Indication: TYPE 2 DIABETES MELLITUS
     Dosage: 1 UNK, QD
     Route: 058
     Dates: start: 20100323, end: 20110110
  6. EXFORGE [Concomitant]

REACTIONS (1)
  - PANCREATIC CARCINOMA [None]
